FAERS Safety Report 10074954 (Version 1)
Quarter: 2014Q2

REPORT INFORMATION
  Report Type: Spontaneous
  Country: US (occurrence: US)
  Receive Date: 20140414
  Receipt Date: 20140414
  Transmission Date: 20141212
  Serious: No
  Sender: FDA-Public Use
  Company Number: US-BIOGENIDEC-2014BI027419

PATIENT
  Sex: Female

DRUGS (21)
  1. TECFIDERA [Suspect]
     Indication: MULTIPLE SCLEROSIS
     Dates: start: 20130901
  2. TECFIDERA [Suspect]
     Indication: MULTIPLE SCLEROSIS
     Route: 048
  3. TECFIDERA [Suspect]
     Indication: MULTIPLE SCLEROSIS
  4. TYSABRI [Concomitant]
     Indication: MULTIPLE SCLEROSIS
     Route: 042
  5. TYSABRI [Concomitant]
     Indication: MULTIPLE SCLEROSIS
     Route: 042
     Dates: start: 20121107, end: 20130621
  6. TYSABRI [Concomitant]
     Indication: MULTIPLE SCLEROSIS
     Route: 042
     Dates: start: 20110603, end: 20120711
  7. AVONEX [Concomitant]
     Indication: MULTIPLE SCLEROSIS
     Route: 030
  8. AVONEX [Concomitant]
     Indication: MULTIPLE SCLEROSIS
     Route: 030
     Dates: start: 20090601, end: 20110426
  9. ACETAMINOPHEN [Concomitant]
  10. BACLOFEN [Concomitant]
  11. CALTRATE 600 + D [Concomitant]
  12. CLONAZEPAM [Concomitant]
  13. HYDROCHLOROTHIAZIDE [Concomitant]
  14. MIRTAZAPINE [Concomitant]
  15. MORPHINE SULFATE ER [Concomitant]
  16. OMEPRAZOLE [Concomitant]
  17. OXYCODONE HCL [Concomitant]
  18. PROMETHAZINE HCL [Concomitant]
  19. PROVIGIL [Concomitant]
  20. ROPINIROLE HCL ER [Concomitant]
  21. ZOLPIDEM TARTRATE [Concomitant]

REACTIONS (3)
  - Back disorder [Not Recovered/Not Resolved]
  - Prescribed underdose [Not Recovered/Not Resolved]
  - Nausea [Not Recovered/Not Resolved]
